FAERS Safety Report 20489267 (Version 1)
Quarter: 2022Q1

REPORT INFORMATION
  Report Type: Spontaneous
  Country: US (occurrence: None)
  Receive Date: 20220217
  Receipt Date: 20220217
  Transmission Date: 20220423
  Serious: No
  Sender: FDA-Public Use
  Company Number: None

PATIENT
  Age: 79 Year
  Sex: Male
  Weight: 81 kg

DRUGS (4)
  1. BRUT CLASSIC ANTI-PERSPIRANT AND DEODORANT ORIGINAL FRAGRANCE [Suspect]
     Active Substance: ALUMINUM CHLOROHYDRATE
     Indication: Personal hygiene
     Dosage: OTHER QUANTITY : 6 OUNCE(S);?
     Route: 061
  2. NORVASC [Concomitant]
     Active Substance: AMLODIPINE BESYLATE
  3. CARDURA [Concomitant]
     Active Substance: DOXAZOSIN MESYLATE
  4. NEXIUM [Concomitant]
     Active Substance: ESOMEPRAZOLE MAGNESIUM

REACTIONS (1)
  - Application site pain [None]

NARRATIVE: CASE EVENT DATE: 20210601
